FAERS Safety Report 15859885 (Version 1)
Quarter: 2019Q1

REPORT INFORMATION
  Report Type: Spontaneous
  Country: GB (occurrence: GB)
  Receive Date: 20190123
  Receipt Date: 20190123
  Transmission Date: 20190417
  Serious: Yes (Life-Threatening, Other)
  Sender: FDA-Public Use
  Company Number: GB-MYLANLABS-2019M1006320

PATIENT
  Age: 68 Year
  Sex: Female
  Weight: 69 kg

DRUGS (16)
  1. AZITHROMYCIN ANHYDROUS. [Concomitant]
     Active Substance: AZITHROMYCIN ANHYDROUS
     Dosage: MONDAY, WEDNESDAY AND FRIDAY
     Dates: start: 20130912
  2. IRBESARTAN. [Concomitant]
     Active Substance: IRBESARTAN
     Dosage: 1 DOSAGE FORM, QD
     Dates: start: 20150825
  3. VERAPAMIL HYDROCHLORIDE. [Concomitant]
     Active Substance: VERAPAMIL HYDROCHLORIDE
     Dosage: 1 DOSAGE FORM, QD
     Dates: start: 20160621
  4. LANSOPRAZOLE. [Suspect]
     Active Substance: LANSOPRAZOLE
     Indication: PRODUCT USED FOR UNKNOWN INDICATION
     Dosage: UNK
     Dates: start: 20160428
  5. FLUTICASONE. [Concomitant]
     Active Substance: FLUTICASONE
     Dosage: 4 DOSAGE FORM, QD (PUFFS)
     Route: 055
     Dates: start: 20160414
  6. CLOPIDOGREL [Concomitant]
     Active Substance: CLOPIDOGREL BISULFATE
     Dosage: 1 DOSAGE FORM, QD (EACH MORNING, AFTER FOOD - LONG TERM)
     Dates: start: 20160712
  7. SALBUTAMOL [Concomitant]
     Active Substance: ALBUTEROL
     Dosage: UNK UNK, QID (ONE OR TWO PUFFS TO BE INHALED FOUR TIMES A DAY)
     Route: 055
     Dates: start: 20160414
  8. ATORVASTATIN [Concomitant]
     Active Substance: ATORVASTATIN
     Dosage: 1 DOSAGE FORM, QD
     Dates: start: 20161020
  9. CLOBETASOL PROPIONATE. [Concomitant]
     Active Substance: CLOBETASOL PROPIONATE
     Dosage: 1 DOSAGE FORM, QD (APPLY SPARINGLY TO THE AFFECTED AREA EACH NIGHT)
     Dates: start: 20170510
  10. SALMETEROL [Concomitant]
     Active Substance: SALMETEROL
     Dosage: UNK UNK, PRN (1 -2 PUFFS TWICE A DAY)
     Dates: start: 20151006
  11. FLUTICASONE PROPIONATE. [Concomitant]
     Active Substance: FLUTICASONE PROPIONATE
     Dosage: UNK UNK, QD (1 -2 SPRAYS TO EACH NOSTRIL DAILY)
     Route: 045
     Dates: start: 20140211
  12. MOXONIDINE [Concomitant]
     Active Substance: MOXONIDINE
     Dosage: 2 DOSAGE FORM, QD
     Dates: start: 20160712
  13. MONTELUKAST [Concomitant]
     Active Substance: MONTELUKAST SODIUM
     Dosage: 1 DOSAGE FORM, QD (EACH EVENING.)
     Dates: start: 20160428
  14. LORATADINE. [Concomitant]
     Active Substance: LORATADINE
     Dosage: 1 DOSAGE FORM, QD
     Dates: start: 19990504
  15. PREDNISOLONE. [Concomitant]
     Active Substance: PREDNISOLONE
     Dosage: 6 DOSAGE FORM, QD (FOR 5 DAYS)
     Dates: start: 20180515, end: 20180521
  16. DOXYCYCLINE. [Concomitant]
     Active Substance: DOXYCYCLINE
     Dosage: 1 DOSAGE FORM, QD (TAKE 2 FOR FIRST DOSE)
     Dates: start: 20180515, end: 20180520

REACTIONS (5)
  - Blood magnesium decreased [Recovering/Resolving]
  - Electrolyte imbalance [Recovering/Resolving]
  - Blood calcium decreased [Recovering/Resolving]
  - Blood potassium decreased [Recovering/Resolving]
  - Liver function test abnormal [Recovering/Resolving]

NARRATIVE: CASE EVENT DATE: 20180626
